FAERS Safety Report 11744319 (Version 1)
Quarter: 2015Q4

REPORT INFORMATION
  Report Type: Spontaneous
  Country: US (occurrence: US)
  Receive Date: 20151116
  Receipt Date: 20151116
  Transmission Date: 20160304
  Serious: No
  Sender: FDA-Public Use
  Company Number: US-DSJP-DSU-2015-123271

PATIENT
  Age: 81 Year
  Sex: Female
  Weight: 37.19 kg

DRUGS (4)
  1. GABAPENTIN. [Concomitant]
     Active Substance: GABAPENTIN
     Indication: NEUROPATHY PERIPHERAL
     Dosage: 600 MG, BID
  2. A SLEW OF MEDICATIONS [Concomitant]
     Indication: PAIN
     Dosage: UNK
  3. NUTRITIONAL SUPPLEMENTATION [Concomitant]
     Indication: NUTRITIONAL SUPPLEMENTATION
     Dosage: 8 OZ CANS/FIVE CANS A DAY
     Dates: start: 201412
  4. WELCHOL [Suspect]
     Active Substance: COLESEVELAM HYDROCHLORIDE
     Indication: DIARRHOEA
     Dosage: 3.75 G (ONE PACKET), QD
     Route: 065
     Dates: start: 20150720

REACTIONS (2)
  - No adverse event [Not Recovered/Not Resolved]
  - Off label use [Not Recovered/Not Resolved]

NARRATIVE: CASE EVENT DATE: 20150720
